FAERS Safety Report 8576671 (Version 4)
Quarter: 2016Q3

REPORT INFORMATION
  Report Type: Report from Study
  Country: US (occurrence: US)
  Receive Date: 20120523
  Receipt Date: 20160711
  Transmission Date: 20161109
  Serious: Yes (Death, Hospitalization, Other)
  Sender: FDA-Public Use
  Company Number: US-ROCHE-1067751

PATIENT
  Age: 43 Year
  Sex: Male
  Weight: 77.6 kg

DRUGS (24)
  1. TAMSULOSIN [Concomitant]
     Active Substance: TAMSULOSIN
  2. MUCOMYST [Concomitant]
     Active Substance: ACETYLCYSTEINE
  3. RITALIN [Concomitant]
     Active Substance: METHYLPHENIDATE HYDROCHLORIDE
  4. DIFLUCAN [Concomitant]
     Active Substance: FLUCONAZOLE
  5. LEVOTHYROXINE. [Concomitant]
     Active Substance: LEVOTHYROXINE
  6. XOPENEX [Concomitant]
     Active Substance: LEVALBUTEROL HYDROCHLORIDE
  7. FLOMAX [Concomitant]
     Active Substance: TAMSULOSIN HYDROCHLORIDE
  8. CELEXA [Concomitant]
     Active Substance: CITALOPRAM HYDROBROMIDE
  9. BACTRIM [Concomitant]
     Active Substance: SULFAMETHOXAZOLE\TRIMETHOPRIM
     Route: 065
     Dates: start: 20120206
  10. BENDAMUSTINE [Suspect]
     Active Substance: BENDAMUSTINE
     Indication: HAIRY CELL LEUKAEMIA
     Route: 042
     Dates: start: 20120209, end: 20120405
  11. VALACYCLOVIR [Concomitant]
     Active Substance: VALACYCLOVIR HYDROCHLORIDE
     Route: 065
     Dates: start: 20120208
  12. MORPHINE [Concomitant]
     Active Substance: MORPHINE
  13. ATROVENT [Concomitant]
     Active Substance: IPRATROPIUM BROMIDE
  14. EPOGEN [Concomitant]
     Active Substance: ERYTHROPOIETIN
  15. NEUPOGEN [Concomitant]
     Active Substance: FILGRASTIM
  16. SYNTHROID [Concomitant]
     Active Substance: LEVOTHYROXINE SODIUM
  17. PRIMAX [Concomitant]
  18. PRAVACHOL [Concomitant]
     Active Substance: PRAVASTATIN SODIUM
  19. FLAGYL [Concomitant]
     Active Substance: METRONIDAZOLE\METRONIDAZOLE HYDROCHLORIDE
  20. BACTRIM [Concomitant]
     Active Substance: SULFAMETHOXAZOLE\TRIMETHOPRIM
  21. OXYCODONE [Concomitant]
     Active Substance: OXYCODONE
  22. RITUXIMAB [Suspect]
     Active Substance: RITUXIMAB
     Indication: HAIRY CELL LEUKAEMIA
     Dosage: 10 MG/ML
     Route: 042
     Dates: start: 20120209, end: 20120404
  23. CIPRO [Concomitant]
     Active Substance: CIPROFLOXACIN HYDROCHLORIDE
  24. ATIVAN [Concomitant]
     Active Substance: LORAZEPAM

REACTIONS (11)
  - Pneumonia [Fatal]
  - Pseudomonal sepsis [Unknown]
  - Clostridium difficile colitis [Unknown]
  - Febrile neutropenia [Fatal]
  - Pyrexia [Unknown]
  - Pleural effusion [Unknown]
  - Gastrointestinal toxicity [Unknown]
  - Sepsis [Fatal]
  - Lung infection [Fatal]
  - Pancytopenia [Unknown]
  - Neutropenia [Fatal]

NARRATIVE: CASE EVENT DATE: 20120412
